FAERS Safety Report 6548548-8 (Version None)
Quarter: 2010Q1

REPORT INFORMATION
  Report Type: 
  Country: None (occurrence: None)
  Receive Date: 20100124
  Receipt Date: 20090814
  Transmission Date: 20100710
  Serious: No
  Sender: FDA-Public Use
  Company Number: US-ALLERGAN-0911329US

PATIENT
  Age: 68 Year
  Sex: Male

DRUGS (1)
  1. RESTASIS [Suspect]
     Indication: DRUG USE FOR UNKNOWN INDICATION
     Dosage: 1 GTT, SINGLE
     Route: 047
     Dates: start: 20050101, end: 20050101

REACTIONS (1)
  - VISUAL IMPAIRMENT [None]
